FAERS Safety Report 7450150-0 (Version None)
Quarter: 2011Q2

REPORT INFORMATION
  Report Type: 
  Country: None (occurrence: None)
  Receive Date: 20110422
  Receipt Date: 20110405
  Transmission Date: 20111010
  Serious: Yes (Hospitalization)
  Sender: FDA-Public Use
  Company Number: CAO11000476

PATIENT
  Sex: Male

DRUGS (2)
  1. BISMUTH SUBSALICYLATE [Suspect]
     Indication: ABDOMINAL PAIN UPPER
     Dosage: 1 TBSP, 1 ONLY, ORAL
     Route: 048
     Dates: start: 20110328, end: 20110328
  2. NEXIUM [Concomitant]

REACTIONS (3)
  - ABDOMINAL PAIN UPPER [None]
  - CONDITION AGGRAVATED [None]
  - FAECES DISCOLOURED [None]
